FAERS Safety Report 4837056-8 (Version None)
Quarter: 2005Q4

REPORT INFORMATION
  Report Type: 
  Country: None (occurrence: None)
  Receive Date: 20051121
  Receipt Date: 20051117
  Transmission Date: 20060501
  Serious: Yes (Life-Threatening)
  Sender: FDA-Public Use
  Company Number: DEWYE147717NOV05

PATIENT
  Age: 36 Year
  Sex: Female

DRUGS (24)
  1. PIPERACILLIN [Suspect]
     Indication: PSEUDOMONAS INFECTION
     Dosage: SEE IMAGE
     Route: 042
     Dates: start: 20050302, end: 20050302
  2. PIPERACILLIN [Suspect]
     Indication: RESPIRATORY TRACT INFECTION
     Dosage: SEE IMAGE
     Route: 042
     Dates: start: 20050302, end: 20050302
  3. PIPERACILLIN [Suspect]
     Indication: PSEUDOMONAS INFECTION
     Dosage: SEE IMAGE
     Route: 042
     Dates: start: 20050303, end: 20050309
  4. PIPERACILLIN [Suspect]
     Indication: RESPIRATORY TRACT INFECTION
     Dosage: SEE IMAGE
     Route: 042
     Dates: start: 20050303, end: 20050309
  5. SULTAMOL (SALBUTAMOL) [Concomitant]
  6. BEROTEC (FENOTEROL HYDROBROMIDE) [Concomitant]
  7. CETIRIZINE HCL [Concomitant]
  8. URION (ALFUZOSIN HYDROCHLORIDE) [Concomitant]
  9. METFORMIN HCL [Concomitant]
  10. RAMIPRIL [Concomitant]
  11. ACETYLCYSTEINE [Concomitant]
  12. VOLMAC (SALBUTAMOL SULFATE) [Concomitant]
  13. CALCIUM CARBONATE (CALCIUM CARBONATE) [Concomitant]
  14. VIGANTOLETTEN (COLECALCIFEROL) [Concomitant]
  15. URSO FALK [Concomitant]
  16. CRONASMA (THEOPHYLLINE) [Concomitant]
  17. SUMMAVIT (VITAMINS NOS) [Concomitant]
  18. MAGNESIUM DIASPORAL (MAGNESIUM CITRATE) [Concomitant]
  19. COMBACTAM (SULBACTAM SODIUM) [Concomitant]
  20. TOBRAMYCIN [Concomitant]
  21. COLISTIN (COLISTIN) [Concomitant]
  22. DIMENHYDRINATE [Concomitant]
  23. LOFTAN (SALBUTAMOL SULFATE) [Concomitant]
  24. THEOPHYLLINE [Concomitant]

REACTIONS (7)
  - ANAEMIA HAEMOLYTIC AUTOIMMUNE [None]
  - BLOOD IMMUNOGLOBULIN G INCREASED [None]
  - BLOOD LACTATE DEHYDROGENASE INCREASED [None]
  - COOMBS DIRECT TEST POSITIVE [None]
  - HAPTOGLOBIN DECREASED [None]
  - IMMUNE COMPLEX LEVEL INCREASED [None]
  - WHITE BLOOD CELL COUNT INCREASED [None]
